FAERS Safety Report 5109847-X (Version None)
Quarter: 2006Q3

REPORT INFORMATION
  Report Type: 
  Country: None (occurrence: None)
  Receive Date: 20060919
  Receipt Date: 20060919
  Transmission Date: 20061208
  Serious: Yes (Death)
  Sender: FDA-Public Use
  Company Number: None

PATIENT
  Age: 29 Year
  Sex: Female
  Weight: 86.1834 kg

DRUGS (1)
  1. YASMIN-R  28 3MG/0.03MG BERLEX [Suspect]
     Indication: CONTRACEPTION
     Dosage: 3MG/0.03MG ONE A DAY PO
     Route: 048
     Dates: start: 20050818, end: 20060818

REACTIONS (10)
  - ASTHENIA [None]
  - CARDIAC ARREST [None]
  - ELECTROMECHANICAL DISSOCIATION [None]
  - FALL [None]
  - GASTROINTESTINAL NECROSIS [None]
  - GENERAL PHYSICAL HEALTH DETERIORATION [None]
  - HYPOTENSION [None]
  - INTRACARDIAC THROMBUS [None]
  - MALAISE [None]
  - PULMONARY EMBOLISM [None]
